FAERS Safety Report 10487411 (Version 3)
Quarter: 2014Q4

REPORT INFORMATION
  Report Type: Spontaneous
  Country: GB (occurrence: GB)
  Receive Date: 20141001
  Receipt Date: 20141219
  Transmission Date: 20150528
  Serious: Yes (Other)
  Sender: FDA-Public Use
  Company Number: GB-ELI_LILLY_AND_COMPANY-GB201409008534

PATIENT
  Sex: Male
  Weight: 87 kg

DRUGS (9)
  1. ISOPHANE INSULIN [Concomitant]
     Active Substance: INSULIN NOS
  2. EPILIM [Concomitant]
     Active Substance: VALPROATE SODIUM
     Indication: SEIZURE
  3. LACOSAMIDE [Concomitant]
     Active Substance: LACOSAMIDE
     Indication: SEIZURE
     Dosage: 100 MG, BID
  4. ASPIRIN. [Concomitant]
     Active Substance: ASPIRIN
  5. IVABRADINE [Concomitant]
     Active Substance: IVABRADINE
     Dosage: 5 MG, BID
  6. HUMALOG [Suspect]
     Active Substance: INSULIN LISPRO
     Indication: TYPE 1 DIABETES MELLITUS
     Dosage: UNK UNK, TID
     Route: 058
     Dates: start: 2004
  7. HUMALOG [Suspect]
     Active Substance: INSULIN LISPRO
     Dosage: UNK, TID
     Route: 058
     Dates: start: 20121217
  8. CLOPIDOGREL [Concomitant]
     Active Substance: CLOPIDOGREL BISULFATE
     Dosage: 75 MG, QD
  9. SIMVASTATIN. [Concomitant]
     Active Substance: SIMVASTATIN
     Dosage: 40 MG, UNK

REACTIONS (2)
  - Generalised tonic-clonic seizure [Recovered/Resolved]
  - Temporal lobe epilepsy [Recovered/Resolved]
